FAERS Safety Report 15002714 (Version 1)
Quarter: 2018Q2

REPORT INFORMATION
  Report Type: Spontaneous
  Country: NO (occurrence: NO)
  Receive Date: 20180612
  Receipt Date: 20180612
  Transmission Date: 20180711
  Serious: Yes (Other)
  Sender: FDA-Public Use
  Company Number: PHHY2018NO017594

PATIENT
  Sex: Male

DRUGS (1)
  1. RITALIN [Suspect]
     Active Substance: METHYLPHENIDATE HYDROCHLORIDE
     Indication: ATTENTION DEFICIT/HYPERACTIVITY DISORDER
     Dosage: UNK
     Route: 065
     Dates: start: 2001, end: 2016

REACTIONS (6)
  - Social anxiety disorder [Unknown]
  - Stress [Unknown]
  - Psychotic disorder [Unknown]
  - Insomnia [Unknown]
  - Poisoning [Unknown]
  - Nervousness [Unknown]

NARRATIVE: CASE EVENT DATE: 2001
